FAERS Safety Report 18387147 (Version 1)
Quarter: 2020Q4

REPORT INFORMATION
  Report Type: Spontaneous
  Country: AU (occurrence: AU)
  Receive Date: 20201015
  Receipt Date: 20201015
  Transmission Date: 20210114
  Serious: Yes (Death)
  Sender: FDA-Public Use
  Company Number: AU-PFIZER INC-2020391600

PATIENT
  Age: 79 Year
  Sex: Female

DRUGS (7)
  1. VANCOMYCIN HCL [Suspect]
     Active Substance: VANCOMYCIN HYDROCHLORIDE
     Indication: WOUND INFECTION STAPHYLOCOCCAL
     Dosage: UNK (A TOTAL OF 25 DAYS OF THERAPY OVER 5 MONTHS)
     Route: 042
  2. LINEZOLID. [Suspect]
     Active Substance: LINEZOLID
     Indication: ANTIBIOTIC THERAPY
  3. RIFAMPICIN [Suspect]
     Active Substance: RIFAMPIN
     Indication: ANTIBIOTIC THERAPY
  4. LINEZOLID. [Suspect]
     Active Substance: LINEZOLID
     Indication: WOUND INFECTION STAPHYLOCOCCAL
     Dosage: UNK
  5. RIFAMPICIN [Suspect]
     Active Substance: RIFAMPIN
     Indication: WOUND INFECTION STAPHYLOCOCCAL
     Dosage: UNK
  6. FUSIDIC ACID SODIUM [Suspect]
     Active Substance: FUSIDATE SODIUM
     Indication: ANTIBIOTIC THERAPY
  7. FUSIDIC ACID SODIUM [Suspect]
     Active Substance: FUSIDATE SODIUM
     Indication: WOUND INFECTION STAPHYLOCOCCAL
     Dosage: UNK

REACTIONS (1)
  - Drug ineffective [Fatal]
